FAERS Safety Report 10240244 (Version 1)
Quarter: 2014Q2

REPORT INFORMATION
  Report Type: Spontaneous
  Country: ES (occurrence: ES)
  Receive Date: 20140617
  Receipt Date: 20140617
  Transmission Date: 20141212
  Serious: Yes (Hospitalization)
  Sender: FDA-Public Use
  Company Number: PHHY2014ES073110

PATIENT
  Age: 53 Year
  Sex: Male

DRUGS (2)
  1. AFINITOR [Suspect]
     Indication: PANCREATIC NEUROENDOCRINE TUMOUR
     Dosage: UNK
     Dates: start: 201404
  2. SOMATULIN [Concomitant]
     Dosage: 1 DF, QMO

REACTIONS (4)
  - Loss of consciousness [Recovered/Resolved]
  - Agitation [Recovered/Resolved]
  - Acute respiratory distress syndrome [Recovered/Resolved]
  - Transaminases increased [Recovering/Resolving]
